FAERS Safety Report 5977663-2 (Version None)
Quarter: 2008Q4

REPORT INFORMATION
  Report Type: 
  Country: None (occurrence: None)
  Receive Date: 20081203
  Receipt Date: 20081118
  Transmission Date: 20090506
  Serious: Yes (Hospitalization)
  Sender: FDA-Public Use
  Company Number: JP-GENENTECH-272283

PATIENT
  Sex: Male
  Weight: 49.4 kg

DRUGS (3)
  1. BEVACIZUMAB [Suspect]
     Indication: COLON CANCER
     Dosage: 240 MG, Q2W
     Route: 041
  2. IRINOTECAN HYDROCHLORIDE [Suspect]
     Indication: COLON CANCER
     Route: 041
  3. TS-1 [Suspect]
     Indication: COLON CANCER
     Route: 041

REACTIONS (1)
  - PYREXIA [None]
